FAERS Safety Report 9069887 (Version 1)
Quarter: 2013Q1

REPORT INFORMATION
  Report Type: Spontaneous
  Country: FR (occurrence: FR)
  Receive Date: 20130215
  Receipt Date: 20130215
  Transmission Date: 20140127
  Serious: Yes (Other)
  Sender: FDA-Public Use
  Company Number: FR-ABBOTT-12P-056-1005767-00

PATIENT
  Age: 61 None
  Sex: Female
  Weight: 64.5 kg

DRUGS (10)
  1. HUMIRA [Suspect]
     Indication: CROHN^S DISEASE
     Dosage: LOADED DOSE: 160MG AT J0, 80MG AT J14 AND THEN 40MG PER 14 DAYS
     Dates: start: 20121012, end: 20121012
  2. HUMIRA [Suspect]
     Dates: start: 20121026, end: 20121026
  3. HUMIRA [Suspect]
     Route: 058
     Dates: start: 20121109
  4. HUMIRA [Suspect]
     Route: 058
     Dates: start: 20121207
  5. OROCAL D3 [Concomitant]
     Indication: PRODUCT USED FOR UNKNOWN INDICATION
     Route: 048
     Dates: start: 2002
  6. OMEPRAZOLE [Concomitant]
     Indication: PRODUCT USED FOR UNKNOWN INDICATION
     Route: 048
     Dates: start: 2008, end: 20121026
  7. SPASFON [Concomitant]
     Indication: PRODUCT USED FOR UNKNOWN INDICATION
     Dosage: 3 PER DAY AS NEEDED
     Route: 048
     Dates: start: 2010
  8. LEXOMIL [Concomitant]
     Indication: PRODUCT USED FOR UNKNOWN INDICATION
     Route: 048
     Dates: start: 1997
  9. ENTOCORT [Concomitant]
     Indication: PRODUCT USED FOR UNKNOWN INDICATION
     Dosage: 3 PER DAY AND THEN 2 PER DAY
     Route: 048
     Dates: start: 201206
  10. PANTOPRAZOLE [Concomitant]
     Indication: PRODUCT USED FOR UNKNOWN INDICATION
     Dates: start: 20121026

REACTIONS (10)
  - Pyrexia [Recovered/Resolved]
  - Headache [Recovered/Resolved]
  - Rhinitis [Recovered/Resolved]
  - Pharyngitis [Recovered/Resolved]
  - Cough [Recovered/Resolved]
  - Aphonia [Recovered/Resolved]
  - Acute sinusitis [Recovered/Resolved]
  - Dysphonia [Not Recovered/Not Resolved]
  - Sinusitis [Not Recovered/Not Resolved]
  - Oropharyngeal pain [Not Recovered/Not Resolved]
